FAERS Safety Report 5443519-7 (Version None)
Quarter: 2007Q3

REPORT INFORMATION
  Report Type: 
  Country: None (occurrence: None)
  Receive Date: 20070730
  Receipt Date: 20070308
  Transmission Date: 20080115
  Serious: Yes (Other)
  Sender: FDA-Public Use
  Company Number: 237971

PATIENT
  Age: 75 Year
  Sex: Female
  Weight: 74.4 kg

DRUGS (3)
  1. RITUXAN [Suspect]
     Indication: RHEUMATOID ARTHRITIS
     Dates: start: 20061204
  2. PREDNISONE TAB [Concomitant]
  3. NEXIUM [Concomitant]

REACTIONS (1)
  - VIRAL INFECTION [None]
